FAERS Safety Report 19919917 (Version 1)
Quarter: 2021Q4

REPORT INFORMATION
  Report Type: Spontaneous
  Country: US (occurrence: US)
  Receive Date: 20211005
  Receipt Date: 20211005
  Transmission Date: 20220303
  Serious: No
  Sender: FDA-Public Use
  Company Number: US-GSKCCFUS-CASE-01178417_AE-69018

PATIENT
  Sex: Female

DRUGS (2)
  1. FLOVENT HFA [Suspect]
     Active Substance: FLUTICASONE PROPIONATE
     Indication: Asthma
     Dosage: UNK
     Route: 055
  2. VENTOLIN HFA INHALER [Concomitant]
     Indication: Product used for unknown indication
     Route: 055

REACTIONS (2)
  - Limb injury [Unknown]
  - Wrong technique in device usage process [Unknown]
